FAERS Safety Report 7202775-5 (Version None)
Quarter: 2010Q4

REPORT INFORMATION
  Report Type: 
  Country: None (occurrence: None)
  Receive Date: 20101229
  Receipt Date: 20101222
  Transmission Date: 20110411
  Serious: Yes (Hospitalization, Other)
  Sender: FDA-Public Use
  Company Number: US-ABBOTT-10P-163-0693293-00

PATIENT
  Sex: Female
  Weight: 57.658 kg

DRUGS (2)
  1. HUMIRA [Suspect]
     Indication: CROHN'S DISEASE
     Dates: start: 20080101, end: 20100901
  2. HUMIRA [Suspect]

REACTIONS (3)
  - ABDOMINAL PAIN UPPER [None]
  - DIVERTICULAR PERFORATION [None]
  - DIVERTICULITIS [None]
